FAERS Safety Report 18689019 (Version 1)
Quarter: 2020Q4

REPORT INFORMATION
  Report Type: Spontaneous
  Country: CN (occurrence: CN)
  Receive Date: 20201231
  Receipt Date: 20201231
  Transmission Date: 20210114
  Serious: Yes (Hospitalization, Disabling)
  Sender: FDA-Public Use
  Company Number: CN-BAXTER-2020BAX026268

PATIENT
  Age: 53 Year
  Sex: Female
  Weight: 50 kg

DRUGS (7)
  1. MEILUOHUA [Suspect]
     Active Substance: RITUXIMAB
     Indication: DIFFUSE LARGE B-CELL LYMPHOMA STAGE II
     Dosage: RITUXIMAB + 0.9% SODIUM CHLORIDE, R-CHOP REGIMEN
     Route: 041
     Dates: start: 20200908, end: 20200908
  2. SODIUM CHLORIDE. [Suspect]
     Active Substance: SODIUM CHLORIDE
     Dosage: 0.9% SODIUM CHLORIDE + VINCRISTINE SULFATE, R-CHOP REGIMEN
     Route: 041
     Dates: start: 20200912, end: 20200912
  3. SODIUM CHLORIDE. [Suspect]
     Active Substance: SODIUM CHLORIDE
     Dosage: 0.9% SODIUM CHLORIDE + RITUXIMAB, R-CHOP REGIMEN
     Route: 041
     Dates: start: 20200908, end: 20200908
  4. ENDOXAN [Suspect]
     Active Substance: CYCLOPHOSPHAMIDE
     Indication: DIFFUSE LARGE B-CELL LYMPHOMA STAGE II
     Dosage: CYCLOPHOSPHAMIDE + 0.9% SODIUM CHLORIDE, R-CHOP REGIMEN
     Route: 041
     Dates: start: 20200912, end: 20200912
  5. PREDNISONE. [Suspect]
     Active Substance: PREDNISONE
     Indication: DIFFUSE LARGE B-CELL LYMPHOMA STAGE II
     Dosage: TABLET, R-CHOP REGIMEN
     Route: 048
     Dates: start: 20200909, end: 20200913
  6. VINCRISTINE SULFATE. [Suspect]
     Active Substance: VINCRISTINE SULFATE
     Indication: DIFFUSE LARGE B-CELL LYMPHOMA STAGE II
     Dosage: VINCRISTINE + 0.9% SODIUM CHLORIDE, R-CHOP REGIMEN
     Route: 041
     Dates: start: 20200912, end: 20200912
  7. SODIUM CHLORIDE. [Suspect]
     Active Substance: SODIUM CHLORIDE
     Indication: MEDICATION DILUTION
     Dosage: 0.9% SODIUM CHLORIDE + CYCLOPHOSPHAMIDE, R-CHOP REGIMEN
     Route: 041
     Dates: start: 20200912, end: 20200912

REACTIONS (4)
  - Abdominal distension [Recovering/Resolving]
  - Gastrointestinal perforation [Recovering/Resolving]
  - Abdominal pain [Recovering/Resolving]
  - Dysuria [Unknown]

NARRATIVE: CASE EVENT DATE: 20200914
